FAERS Safety Report 10100914 (Version 1)
Quarter: 2014Q2

REPORT INFORMATION
  Report Type: Spontaneous
  Country: CN (occurrence: CN)
  Receive Date: 20140423
  Receipt Date: 20140423
  Transmission Date: 20141212
  Serious: Yes (Other)
  Sender: FDA-Public Use
  Company Number: CN-ABBVIE-14P-035-1228618-00

PATIENT
  Age: 44 Year
  Sex: Female

DRUGS (10)
  1. BATILOL [Concomitant]
     Indication: WHITE BLOOD CELL COUNT DECREASED
  2. BATILOL [Concomitant]
  3. DEPAKINE CHRONO [Suspect]
     Indication: AFFECT LABILITY
     Route: 048
     Dates: start: 20121208, end: 20130320
  4. OLANZAPINE [Concomitant]
     Indication: PRODUCT USED FOR UNKNOWN INDICATION
  5. DIVALPROEX SODIUM [Concomitant]
     Indication: PRODUCT USED FOR UNKNOWN INDICATION
  6. HALOPERIDOL [Concomitant]
     Indication: PRODUCT USED FOR UNKNOWN INDICATION
  7. PERPHENAZINE [Concomitant]
     Indication: PSYCHOTIC DISORDER
     Route: 048
     Dates: start: 20130107
  8. PERPHENAZINE [Concomitant]
     Indication: PROPHYLAXIS
     Dosage: DOSE GRADUALLY INCREASED TO 8 MG TWICE DAILY
  9. LEUCOGEN [Concomitant]
     Indication: WHITE BLOOD CELL COUNT DECREASED
  10. LEUCOGEN [Concomitant]
     Route: 048

REACTIONS (1)
  - Leukopenia [Unknown]
